FAERS Safety Report 21006290 (Version 1)
Quarter: 2022Q2

REPORT INFORMATION
  Report Type: Spontaneous
  Country: JP (occurrence: JP)
  Receive Date: 20220624
  Receipt Date: 20220624
  Transmission Date: 20220721
  Serious: Yes (Life-Threatening, Hospitalization, Other)
  Sender: FDA-Public Use
  Company Number: JP-MSD-2206JPN002558JAA

PATIENT
  Age: 6 Decade
  Sex: Male

DRUGS (1)
  1. CUBICIN [Suspect]
     Active Substance: DAPTOMYCIN
     Indication: Sepsis
     Dosage: UNK
     Route: 065

REACTIONS (2)
  - Kounis syndrome [Recovered/Resolved]
  - Anaphylactic shock [Recovered/Resolved]
